FAERS Safety Report 9713748 (Version 1)
Quarter: 2013Q4

REPORT INFORMATION
  Report Type: Spontaneous
  Country: US (occurrence: US)
  Receive Date: 20131126
  Receipt Date: 20131126
  Transmission Date: 20140711
  Serious: Yes (Hospitalization)
  Sender: FDA-Public Use
  Company Number: US-PFIZER INC-2013334832

PATIENT
  Age: 61 Year
  Sex: Female

DRUGS (3)
  1. PROTONIX [Suspect]
     Dosage: 40 MG, DAILY
     Dates: start: 20130704
  2. LETAIRIS [Suspect]
     Indication: SYSTEMIC SCLEROSIS
     Dosage: 10 MG, DAILY
     Dates: start: 20120517
  3. BUMETANIDE [Suspect]
     Dosage: 3 MG, 2X/DAY
     Dates: start: 20130704

REACTIONS (1)
  - Cardiac disorder [Unknown]
